FAERS Safety Report 5964137-8 (Version None)
Quarter: 2008Q4

REPORT INFORMATION
  Report Type: 
  Country: None (occurrence: None)
  Receive Date: 20081124
  Receipt Date: 20081118
  Transmission Date: 20090506
  Serious: Yes (Other)
  Sender: FDA-Public Use
  Company Number: US-KINGPHARMUSA00001-K200801321

PATIENT
  Age: 24 Month
  Sex: Male

DRUGS (6)
  1. ALTACE [Suspect]
     Dosage: UNK
     Route: 048
     Dates: start: 20081023, end: 20081023
  2. METFORMIN HCL [Suspect]
     Dosage: UNK
     Route: 048
     Dates: start: 20081023, end: 20081023
  3. DECORTIN H [Suspect]
     Dosage: UNK
     Route: 048
     Dates: start: 20081023, end: 20081023
  4. SIMVADOR [Suspect]
     Dosage: UNK
     Route: 048
     Dates: start: 20081023, end: 20081023
  5. BRONCHORETARD [Suspect]
     Dosage: UNK
     Route: 048
     Dates: start: 20081023, end: 20081023
  6. CITALOPRAM-HORMOSAN [Suspect]
     Dosage: UNK
     Route: 048
     Dates: start: 20081023, end: 20081023

REACTIONS (2)
  - ACCIDENTAL EXPOSURE [None]
  - NO ADVERSE EVENT [None]
